FAERS Safety Report 9573771 (Version 2)
Quarter: 2013Q4

REPORT INFORMATION
  Report Type: Spontaneous
  Country: JP (occurrence: JP)
  Receive Date: 20131001
  Receipt Date: 20131010
  Transmission Date: 20140711
  Serious: Yes (Life-Threatening)
  Sender: FDA-Public Use
  Company Number: JP-TEVA-433456ISR

PATIENT
  Age: 63 Year
  Sex: Female

DRUGS (3)
  1. SAXIZON FOR INJECTION 100MG [Suspect]
     Indication: ASTHMA
     Route: 042
     Dates: start: 2012, end: 2012
  2. SAXIZON FOR INJECTION 100MG [Suspect]
     Dosage: 200 MILLIGRAM DAILY;
     Route: 042
     Dates: start: 20130917, end: 20130917
  3. SOLDEM 1 [Concomitant]
     Indication: ASTHMA
     Dosage: 200 ML DAILY;
     Route: 042
     Dates: start: 20130917, end: 20130917

REACTIONS (3)
  - Anaphylactic shock [Recovered/Resolved]
  - Depressed level of consciousness [Recovered/Resolved]
  - Blood pressure decreased [Recovered/Resolved]
